FAERS Safety Report 10083886 (Version 1)
Quarter: 2014Q2

REPORT INFORMATION
  Report Type: Spontaneous
  Country: FR (occurrence: FR)
  Receive Date: 20140417
  Receipt Date: 20140417
  Transmission Date: 20141212
  Serious: Yes (Hospitalization)
  Sender: FDA-Public Use
  Company Number: FR-TEVA-475269ISR

PATIENT
  Age: 65 Year
  Sex: Male

DRUGS (18)
  1. PIPERACILLIN TAZOBACTAM TEVA 4 G/500 MG [Suspect]
     Indication: BRONCHITIS
     Dosage: 12 GRAM DAILY;
     Route: 042
     Dates: start: 20120127, end: 20120204
  2. CIPROFLOXACINE [Suspect]
     Indication: BRONCHITIS
     Dosage: 1000 MILLIGRAM DAILY;
     Route: 048
     Dates: start: 20120131, end: 20120204
  3. AMIKACINE MYLAN [Suspect]
     Indication: BRONCHITIS
     Dosage: 750 MILLIGRAM DAILY;
     Route: 042
     Dates: start: 20120127, end: 20120128
  4. SEROPRAM [Concomitant]
     Dosage: 20 MILLIGRAM DAILY; IN THE MORNING
  5. PARACETAMOL [Concomitant]
  6. PULMICORT [Concomitant]
     Dosage: 3 DOSAGE FORMS DAILY;
  7. JOSIR 0.4 MG LP [Concomitant]
     Dosage: 1 DOSAGE FORMS DAILY; IN THE MORNING
  8. STILNOX [Concomitant]
     Dosage: AT BEDTIME
  9. CORTANCYL [Concomitant]
     Dosage: 7 MG IN THE MORNING AND 3 MG IN THE EVENING
  10. TEGELINE [Concomitant]
     Dosage: .8333 GRAM DAILY;
  11. LEVOTHYROX [Concomitant]
     Dosage: 150 MICROGRAM DAILY; IN THE MORNING
  12. EQUANIL [Concomitant]
     Dosage: 400 MILLIGRAM DAILY; IN THE EVENING
  13. SINGULAIR [Concomitant]
     Dosage: 10 MILLIGRAM DAILY; IN THE MORNING
  14. COVERSYL [Concomitant]
     Dosage: 2.5 MILLIGRAM DAILY;
  15. CORDARONE [Concomitant]
     Dosage: 200 MILLIGRAM DAILY; IN THE MORNING
  16. PREVISCAN [Concomitant]
     Dosage: ALTERNATE INTAKE OF A HALF-TABLET AND THREE QUARTERS OF A TABLET
  17. INEXIUM [Concomitant]
     Dosage: 20 MILLIGRAM DAILY; IN THE EVENING
  18. BACTRIM FORTE [Concomitant]
     Indication: ANTIFUNGAL PROPHYLAXIS
     Dosage: 1 DOSAGE FORMS DAILY; IN THE MORNING

REACTIONS (5)
  - Renal failure acute [Recovered/Resolved]
  - Nephropathy [Recovered/Resolved]
  - Acidosis [Recovered/Resolved]
  - Leukocyturia [Recovered/Resolved]
  - Renal injury [Recovered/Resolved]
